FAERS Safety Report 8574386-0 (Version None)
Quarter: 2012Q3

REPORT INFORMATION
  Report Type: 
  Country: None (occurrence: None)
  Receive Date: 20120806
  Receipt Date: 20120727
  Transmission Date: 20120928
  Serious: Yes (Death, Other)
  Sender: FDA-Public Use
  Company Number: BR-ROCHE-779084

PATIENT
  Sex: Male
  Weight: 75 kg

DRUGS (4)
  1. ACTEMRA [Suspect]
     Indication: RHEUMATOID ARTHRITIS
     Dosage: DOSE: 680 MG.
     Route: 042
     Dates: start: 20091001, end: 20110501
  2. CYCLOSPORINE [Suspect]
     Indication: PRODUCT USED FOR UNKNOWN INDICATION
     Route: 065
  3. LEFLUNOMIDE [Suspect]
     Indication: PRODUCT USED FOR UNKNOWN INDICATION
     Dosage: FREQ: 1 TABLET AT NIGHT.
     Route: 065
  4. ACTEMRA [Suspect]
     Route: 042

REACTIONS (9)
  - DEATH [None]
  - LIMB DEFORMITY [None]
  - ANAEMIA [None]
  - RHEUMATOID ARTHRITIS [None]
  - WEIGHT DECREASED [None]
  - ABASIA [None]
  - BONE EROSION [None]
  - SWELLING [None]
  - WEIGHT INCREASED [None]
